FAERS Safety Report 10335031 (Version 1)
Quarter: 2014Q3

REPORT INFORMATION
  Report Type: Spontaneous
  Country: US (occurrence: US)
  Receive Date: 20140723
  Receipt Date: 20140723
  Transmission Date: 20150326
  Serious: No
  Sender: FDA-Public Use
  Company Number: US-ASTRAZENECA-2014SE51192

PATIENT
  Age: 60 Year
  Sex: Female
  Weight: 52.2 kg

DRUGS (3)
  1. ATENOLOL. [Suspect]
     Active Substance: ATENOLOL
     Indication: HYPERTENSION
     Dosage: HALF OF 25 MG DAILY
     Route: 048
  2. ASPIRIN. [Concomitant]
     Active Substance: ASPIRIN
  3. CRESTOR [Suspect]
     Active Substance: ROSUVASTATIN CALCIUM
     Dosage: HALF OF 10 MG DAILY
     Route: 048
     Dates: end: 201403

REACTIONS (3)
  - Off label use [Unknown]
  - Thinking abnormal [Recovering/Resolving]
  - Memory impairment [Recovering/Resolving]
